FAERS Safety Report 20501591 (Version 1)
Quarter: 2022Q1

REPORT INFORMATION
  Report Type: Spontaneous
  Country: CN (occurrence: CN)
  Receive Date: 20220222
  Receipt Date: 20220222
  Transmission Date: 20220423
  Serious: Yes (Hospitalization)
  Sender: FDA-Public Use
  Company Number: CN-GLAXOSMITHKLINE-CN2022APC029649

PATIENT
  Age: 26 Year
  Sex: Female

DRUGS (1)
  1. ACITRETIN [Suspect]
     Active Substance: ACITRETIN
     Indication: Pustular psoriasis
     Dosage: 30 MG, QD

REACTIONS (2)
  - Psoriasis [Unknown]
  - Therapeutic product effect incomplete [Unknown]
